FAERS Safety Report 6585145-2 (Version None)
Quarter: 2010Q1

REPORT INFORMATION
  Report Type: 
  Country: None (occurrence: None)
  Receive Date: 20100217
  Receipt Date: 20100210
  Transmission Date: 20100710
  Serious: Yes (Hospitalization)
  Sender: FDA-Public Use
  Company Number: DE-ROCHE-685516

PATIENT
  Sex: Female
  Weight: 95 kg

DRUGS (6)
  1. PEG-INTERFERON A-2A (RO 25-8310) [Suspect]
     Route: 058
     Dates: start: 20090812
  2. RIBAVIRIN [Concomitant]
     Route: 048
     Dates: start: 20090812
  3. DIAZEPAM [Concomitant]
     Route: 048
  4. RIVOTRIL [Concomitant]
     Route: 048
  5. MIRTAZAPINE [Concomitant]
     Route: 048
  6. HALOPERIDOL [Concomitant]
     Route: 048

REACTIONS (1)
  - DRUG DEPENDENCE [None]
